FAERS Safety Report 4989352-1 (Version None)
Quarter: 2006Q2

REPORT INFORMATION
  Report Type: 
  Country: None (occurrence: None)
  Receive Date: 20060426
  Receipt Date: 20060413
  Transmission Date: 20061013
  Serious: Yes (Other)
  Sender: FDA-Public Use
  Company Number: 2006050924

PATIENT
  Age: 83 Year
  Sex: Female
  Weight: 68.0396 kg

DRUGS (4)
  1. DETROL LA [Suspect]
     Indication: BLADDER DISORDER
     Dosage: 1 IN 1 D
     Dates: start: 20050101
  2. LIPITOR [Concomitant]
  3. THYROID TAB [Concomitant]
  4. TOPROL-XL [Concomitant]

REACTIONS (5)
  - ANXIETY [None]
  - INTERVERTEBRAL DISC PROTRUSION [None]
  - PAIN [None]
  - SCIATICA [None]
  - TREATMENT NONCOMPLIANCE [None]
